FAERS Safety Report 12744185 (Version 1)
Quarter: 2016Q3

REPORT INFORMATION
  Report Type: Spontaneous
  Country: US (occurrence: US)
  Receive Date: 20160914
  Receipt Date: 20160914
  Transmission Date: 20161109
  Serious: No
  Sender: FDA-Public Use
  Company Number: US-ROCHE-1757435

PATIENT
  Age: 61 Year
  Sex: Female

DRUGS (12)
  1. VITAMIN D3 [Concomitant]
     Active Substance: CHOLECALCIFEROL
  2. GABAPENTIN. [Concomitant]
     Active Substance: GABAPENTIN
  3. VITAMIN K2 [Concomitant]
     Active Substance: MENAQUINONE 6
  4. IBUPROFEN. [Concomitant]
     Active Substance: IBUPROFEN
  5. ATENOLOL. [Concomitant]
     Active Substance: ATENOLOL
  6. TYLENOL [Concomitant]
     Active Substance: ACETAMINOPHEN
  7. BALANCED B-100 COMPLEX PRODUCT NOS [Concomitant]
  8. LISINOPRIL. [Concomitant]
     Active Substance: LISINOPRIL
  9. COTELLIC [Suspect]
     Active Substance: COBIMETINIB
     Indication: OVARIAN CANCER
     Dosage: TAKE 2 TABLETS BY MOUTH DAILY FOR 21 DAYS OUT OF EVERY 28 DAYS
     Route: 048
  10. ZELBORAF [Suspect]
     Active Substance: VEMURAFENIB
     Indication: PRODUCT USED FOR UNKNOWN INDICATION
     Route: 065
  11. MEKINIST [Concomitant]
     Active Substance: TRAMETINIB DIMETHYL SULFOXIDE
  12. MINOCYCLINE HCL [Concomitant]
     Active Substance: MINOCYCLINE HYDROCHLORIDE

REACTIONS (2)
  - Fatigue [Unknown]
  - Off label use [Unknown]
